FAERS Safety Report 7296262-6 (Version None)
Quarter: 2011Q1

REPORT INFORMATION
  Report Type: 
  Country: None (occurrence: None)
  Receive Date: 20110216
  Receipt Date: 20110215
  Transmission Date: 20110831
  Serious: Yes (Death)
  Sender: FDA-Public Use
  Company Number: US-ABBOTT-11P-163-0705255-00

PATIENT
  Sex: Female
  Weight: 42.222 kg

DRUGS (6)
  1. LEVOTHYROXINE SODIUM [Concomitant]
     Indication: THYROID DISORDER
  2. COUMADIN [Concomitant]
     Indication: ATRIAL FIBRILLATION
  3. HUMIRA [Suspect]
     Indication: RHEUMATOID ARTHRITIS
     Dates: start: 20101201
  4. LEVOTHYROXINE SODIUM [Concomitant]
     Indication: HYPOTHYROIDISM
  5. METOPROLOL [Concomitant]
     Indication: HYPERTENSION
  6. PREDNISONE TAB [Concomitant]
     Indication: ARTHRITIS

REACTIONS (2)
  - DEATH [None]
  - ABDOMINAL PAIN UPPER [None]
